FAERS Safety Report 20470057 (Version 1)
Quarter: 2022Q1

REPORT INFORMATION
  Report Type: Spontaneous
  Country: US (occurrence: None)
  Receive Date: 20220211
  Receipt Date: 20220211
  Transmission Date: 20220423
  Serious: Yes (Other)
  Sender: FDA-Public Use
  Company Number: None

PATIENT
  Age: 85 Year
  Sex: Male
  Weight: 72 kg

DRUGS (4)
  1. NITROGLYCERIN [Suspect]
     Active Substance: NITROGLYCERIN
  2. 8015 ALARIS PC UNIT [Concomitant]
  3. 8100 ALARIS LARGE VOLUME PUMP [Concomitant]
  4. NITROGLYCERIN [Suspect]
     Active Substance: NITROGLYCERIN

REACTIONS (5)
  - Device safety feature issue [None]
  - Extra dose administered [None]
  - Blood pressure decreased [None]
  - Haemorrhage [None]
  - Depressed level of consciousness [None]

NARRATIVE: CASE EVENT DATE: 20190614
